FAERS Safety Report 5563285-4 (Version None)
Quarter: 2007Q4

REPORT INFORMATION
  Report Type: 
  Country: None (occurrence: None)
  Receive Date: 20071217
  Receipt Date: 20071205
  Transmission Date: 20080405
  Serious: Yes (Hospitalization)
  Sender: FDA-Public Use
  Company Number: JP-MERCK-0712USA02246

PATIENT
  Age: 93 Year
  Sex: Male

DRUGS (3)
  1. STROMECTOL [Suspect]
     Indication: ACARODERMATITIS
     Route: 048
     Dates: start: 20071108, end: 20071108
  2. [THERAPY UNSPECIFIED] [Suspect]
     Route: 048
  3. ALLELOCK [Concomitant]
     Indication: PRURITUS
     Route: 048
     Dates: start: 20071108

REACTIONS (1)
  - DERMATITIS EXFOLIATIVE [None]
